FAERS Safety Report 18161212 (Version 1)
Quarter: 2020Q3

REPORT INFORMATION
  Report Type: Spontaneous
  Country: US (occurrence: US)
  Receive Date: 20200817
  Receipt Date: 20200817
  Transmission Date: 20201103
  Serious: No
  Sender: FDA-Public Use
  Company Number: US-009507513-2008USA008091

PATIENT
  Sex: Female

DRUGS (1)
  1. DULERA [Suspect]
     Active Substance: FORMOTEROL FUMARATE DIHYDRATE\MOMETASONE FUROATE
     Dosage: 100/5 MICROGRAM, 2 PUFFS TWICE PER DAY; START DATE: 4 OR 5 YEARS AGO
     Dates: start: 2015

REACTIONS (2)
  - Expired product administered [Unknown]
  - No adverse event [Unknown]
